FAERS Safety Report 5206827-0 (Version None)
Quarter: 2006Q4

REPORT INFORMATION
  Report Type: 
  Country: None (occurrence: None)
  Receive Date: 20061026
  Receipt Date: 20060814
  Transmission Date: 20070319
  Serious: No
  Sender: FDA-Public Use
  Company Number: 2006100378

PATIENT
  Sex: Female

DRUGS (2)
  1. LYRICA [Suspect]
     Indication: NEURALGIA
     Dosage: 225 MG (75 MG, TID)/A FEW MINUTES
  2. PREVACID [Concomitant]

REACTIONS (5)
  - BLADDER DILATATION [None]
  - BLINDNESS [None]
  - FATIGUE [None]
  - PAIN [None]
  - WEIGHT INCREASED [None]
